FAERS Safety Report 18545421 (Version 1)
Quarter: 2020Q4

REPORT INFORMATION
  Report Type: Spontaneous
  Country: US (occurrence: US)
  Receive Date: 20201125
  Receipt Date: 20201125
  Transmission Date: 20210114
  Serious: No
  Sender: FDA-Public Use
  Company Number: None

PATIENT
  Age: 49 Year
  Sex: Female
  Weight: 59 kg

DRUGS (2)
  1. TAMOXIFEN [Concomitant]
     Active Substance: TAMOXIFEN
  2. ASPIRIN. [Suspect]
     Active Substance: ASPIRIN
     Dates: end: 20201119

REACTIONS (7)
  - Urinary tract infection [None]
  - Headache [None]
  - Presyncope [None]
  - Fatigue [None]
  - Urinary tract disorder [None]
  - Pulmonary embolism [None]
  - Asthenia [None]

NARRATIVE: CASE EVENT DATE: 20201119
